FAERS Safety Report 5643771-9 (Version None)
Quarter: 2008Q1

REPORT INFORMATION
  Report Type: 
  Country: None (occurrence: None)
  Receive Date: 20080228
  Receipt Date: 20080218
  Transmission Date: 20080703
  Serious: Yes (Other)
  Sender: FDA-Public Use
  Company Number: AU-SANOFI-SYNTHELABO-A01200801827

PATIENT
  Sex: Female

DRUGS (1)
  1. STILNOX [Suspect]
     Indication: SLEEP DISORDER
     Dosage: UNK
     Route: 048

REACTIONS (3)
  - ANXIETY [None]
  - HALLUCINATION [None]
  - PARANOIA [None]
